FAERS Safety Report 10238113 (Version 3)
Quarter: 2014Q3

REPORT INFORMATION
  Report Type: Report from Study
  Country: US (occurrence: US)
  Receive Date: 20140616
  Receipt Date: 20140821
  Transmission Date: 20150326
  Serious: Yes (Death, Other)
  Sender: FDA-Public Use
  Company Number: PHEH2014US011858

PATIENT
  Age: 71 Year
  Sex: Male
  Weight: 86.3 kg

DRUGS (2)
  1. TASIGNA [Suspect]
     Active Substance: NILOTINIB
     Indication: OFF LABEL USE
  2. TASIGNA [Suspect]
     Active Substance: NILOTINIB
     Indication: MYELODYSPLASTIC SYNDROME
     Dosage: 400 MG, BID
     Route: 048
     Dates: start: 20140303

REACTIONS (5)
  - Osteomyelitis [Unknown]
  - Gingivitis [Unknown]
  - Zygomycosis [Fatal]
  - Blindness [Unknown]
  - Tooth abscess [Unknown]

NARRATIVE: CASE EVENT DATE: 20140607
